FAERS Safety Report 11597529 (Version 1)
Quarter: 2015Q3

REPORT INFORMATION
  Report Type: Spontaneous
  Country: US (occurrence: US)
  Receive Date: 20150916
  Receipt Date: 20150916
  Transmission Date: 20151125
  Serious: No
  Sender: FDA-Public Use
  Company Number: US-ELI_LILLY_AND_COMPANY-US200801002477

PATIENT
  Age: 66 Year
  Sex: Female

DRUGS (5)
  1. ZOCOR [Concomitant]
     Active Substance: SIMVASTATIN
  2. CALCIUM [Concomitant]
     Active Substance: CALCIUM
  3. ACIPHEX [Concomitant]
     Active Substance: RABEPRAZOLE SODIUM
  4. FORTEO [Suspect]
     Active Substance: TERIPARATIDE
     Indication: OSTEOPOROSIS
     Dates: start: 200712
  5. ASA [Concomitant]
     Active Substance: ASPIRIN

REACTIONS (3)
  - Back pain [Recovering/Resolving]
  - Hot flush [Recovering/Resolving]
  - Asthenia [Recovered/Resolved]

NARRATIVE: CASE EVENT DATE: 200712
